FAERS Safety Report 5688656-7 (Version None)
Quarter: 2008Q1

REPORT INFORMATION
  Report Type: 
  Country: None (occurrence: None)
  Receive Date: 20080331
  Receipt Date: 20080319
  Transmission Date: 20080703
  Serious: Yes (Death, Other)
  Sender: FDA-Public Use
  Company Number: PHBS2008AT03536

PATIENT
  Age: 67 Year
  Sex: Male

DRUGS (4)
  1. ANTITHYMOCYTE IMMUNOGLOBULIN [Concomitant]
     Indication: ORGAN TRANSPLANT
     Dosage: UNK, UNK
     Route: 065
     Dates: start: 19981101
  2. CYCLOSPORINE [Suspect]
     Indication: ORGAN TRANSPLANT
     Dosage: UNK, UNK
     Route: 065
     Dates: start: 19981101
  3. AZATHIOPRINE [Suspect]
     Indication: ORGAN TRANSPLANT
     Dosage: UNK, UNK
     Route: 065
     Dates: start: 19981101
  4. PREDNISOLONE [Suspect]
     Indication: ORGAN TRANSPLANT
     Dosage: UNK, UNK
     Route: 065
     Dates: start: 19981101

REACTIONS (10)
  - CITROBACTER INFECTION [None]
  - EMPYEMA [None]
  - INFECTION [None]
  - LARGE INTESTINE PERFORATION [None]
  - MULTI-ORGAN FAILURE [None]
  - PERITONITIS [None]
  - PNEUMONIA [None]
  - RENAL FAILURE [None]
  - SEPSIS [None]
  - ZYGOMYCOSIS [None]
